FAERS Safety Report 6504414-5 (Version None)
Quarter: 2009Q4

REPORT INFORMATION
  Report Type: 
  Country: None (occurrence: None)
  Receive Date: 20091215
  Receipt Date: 20091207
  Transmission Date: 20100525
  Serious: Yes (Other)
  Sender: FDA-Public Use
  Company Number: 2009029523

PATIENT
  Sex: 0

DRUGS (2)
  1. TRISENOX [Suspect]
     Indication: MYELODYSPLASTIC SYNDROME
     Dosage: INTRAVENOUS DRIP
     Route: 041
     Dates: start: 20040913
  2. LOVASTATIN [Suspect]
     Indication: MYELODYSPLASTIC SYNDROME
     Dates: start: 20040913

REACTIONS (9)
  - ALANINE AMINOTRANSFERASE INCREASED [None]
  - ASPARTATE AMINOTRANSFERASE INCREASED [None]
  - DYSPEPSIA [None]
  - GASTROENTERITIS VIRAL [None]
  - HEPATOTOXICITY [None]
  - INFUSION SITE PAIN [None]
  - OROPHARYNGEAL PAIN [None]
  - PAIN IN EXTREMITY [None]
  - SINUS CONGESTION [None]
